FAERS Safety Report 15958478 (Version 1)
Quarter: 2019Q1

REPORT INFORMATION
  Report Type: Spontaneous
  Country: US (occurrence: US)
  Receive Date: 20190213
  Receipt Date: 20190213
  Transmission Date: 20190417
  Serious: No
  Sender: FDA-Public Use
  Company Number: US-AMGEN-USASP2019020225

PATIENT

DRUGS (2)
  1. BOTOX [Concomitant]
     Active Substance: ONABOTULINUMTOXINA
     Indication: HEMIPLEGIC MIGRAINE
     Dosage: UNK
  2. AIMOVIG [Suspect]
     Active Substance: ERENUMAB-AOOE
     Indication: HEMIPLEGIC MIGRAINE
     Dosage: 70 MG, UNK
     Route: 065
     Dates: start: 201809

REACTIONS (3)
  - Muscle spasms [Unknown]
  - Drug effect incomplete [Unknown]
  - Surgery [Unknown]

NARRATIVE: CASE EVENT DATE: 2018
